FAERS Safety Report 19186830 (Version 2)
Quarter: 2021Q3

REPORT INFORMATION
  Report Type: Spontaneous
  Country: PL (occurrence: PL)
  Receive Date: 20210428
  Receipt Date: 20210709
  Transmission Date: 20211014
  Serious: Yes (Hospitalization, Other)
  Sender: FDA-Public Use
  Company Number: PL-AUROBINDO-AUR-APL-2021-016754

PATIENT
  Age: 4 Year
  Sex: Male

DRUGS (1)
  1. LEVETIRACETAM. [Suspect]
     Active Substance: LEVETIRACETAM
     Indication: SEIZURE
     Dosage: UNK
     Route: 065

REACTIONS (14)
  - Fibrosis [Recovering/Resolving]
  - Apathy [Recovering/Resolving]
  - Transaminases increased [Recovering/Resolving]
  - Hepatic steatosis [Recovering/Resolving]
  - Cholestasis [Recovering/Resolving]
  - Hyperbilirubinaemia [Recovering/Resolving]
  - Blood lactic acid decreased [Recovering/Resolving]
  - Somnolence [Recovering/Resolving]
  - Infection [Recovering/Resolving]
  - Hepatic function abnormal [Recovering/Resolving]
  - Inflammation [Recovering/Resolving]
  - Metabolic acidosis [Recovering/Resolving]
  - Hypoglycaemia [Recovering/Resolving]
  - Coagulopathy [Recovering/Resolving]
